FAERS Safety Report 15357061 (Version 1)
Quarter: 2018Q3

REPORT INFORMATION
  Report Type: Spontaneous
  Country: US (occurrence: US)
  Receive Date: 20180830
  Receipt Date: 20180830
  Transmission Date: 20181010
  Serious: Yes (Hospitalization)
  Sender: FDA-Public Use
  Company Number: None

PATIENT
  Age: 21 Year
  Sex: Female
  Weight: 67 kg

DRUGS (3)
  1. VINCRISTINE SULFATE. [Suspect]
     Active Substance: VINCRISTINE SULFATE
     Dates: end: 20180814
  2. CISPLATIN. [Suspect]
     Active Substance: CISPLATIN
     Dates: end: 20180807
  3. CYCLOPHOSPHAMIDE. [Suspect]
     Active Substance: CYCLOPHOSPHAMIDE
     Dates: end: 20180809

REACTIONS (7)
  - Swelling [None]
  - Paronychia [None]
  - Pain [None]
  - Neutropenia [None]
  - Anaemia [None]
  - Thrombocytopenia [None]
  - White blood cell count decreased [None]

NARRATIVE: CASE EVENT DATE: 20180821
